FAERS Safety Report 7642940-6 (Version None)
Quarter: 2011Q3

REPORT INFORMATION
  Report Type: 
  Country: None (occurrence: None)
  Receive Date: 20110728
  Receipt Date: 20110715
  Transmission Date: 20111222
  Serious: Yes (Other)
  Sender: FDA-Public Use
  Company Number: US-BAYER-2011-062463

PATIENT
  Age: 84 Year
  Sex: Female

DRUGS (1)
  1. MAGNEVIST [Suspect]
     Indication: NUCLEAR MAGNETIC RESONANCE IMAGING BRAIN
     Dosage: 15 ML, ONCE
     Route: 042
     Dates: start: 20110715, end: 20110715

REACTIONS (4)
  - EYELID PTOSIS [None]
  - VOMITING [None]
  - BLOOD PRESSURE INCREASED [None]
  - OCULAR HYPERAEMIA [None]
